FAERS Safety Report 5996262-X (Version None)
Quarter: 2008Q4

REPORT INFORMATION
  Report Type: 
  Country: None (occurrence: None)
  Receive Date: 20081212
  Receipt Date: 20081014
  Transmission Date: 20090506
  Serious: No
  Sender: FDA-Public Use
  Company Number: US-ABBOTT-08P-163-0481668-00

PATIENT
  Sex: Female
  Weight: 89.892 kg

DRUGS (8)
  1. HUMIRA [Suspect]
     Indication: CROHN'S DISEASE
     Dates: start: 20080924, end: 20080924
  2. HUMIRA [Suspect]
  3. HUMIRA [Suspect]
  4. MERCAPTOPURINE [Concomitant]
     Indication: DRUG USE FOR UNKNOWN INDICATION
  5. LIALDA [Concomitant]
     Indication: DRUG USE FOR UNKNOWN INDICATION
  6. ESOMEPRAZOLE MAGNESIUM [Concomitant]
     Indication: DRUG USE FOR UNKNOWN INDICATION
  7. MORPHINE SULFATE [Concomitant]
     Indication: PAIN IN EXTREMITY
  8. MORPHINE SULFATE [Concomitant]
     Indication: BACK PAIN

REACTIONS (1)
  - INJECTION SITE IRRITATION [None]
